FAERS Safety Report 13323227 (Version 1)
Quarter: 2017Q1

REPORT INFORMATION
  Report Type: Other
  Country: PL (occurrence: PL)
  Receive Date: 20170310
  Receipt Date: 20170310
  Transmission Date: 20170428
  Serious: Yes (Other)
  Sender: FDA-Public Use
  Company Number: PL-LABORATOIRE HRA PHARMA-1064117

PATIENT
  Age: 24 Year
  Sex: Female
  Weight: 48 kg

DRUGS (1)
  1. ELLA [Suspect]
     Active Substance: ULIPRISTAL ACETATE
     Route: 048
     Dates: start: 20170102, end: 20170102

REACTIONS (2)
  - Abortion spontaneous [None]
  - Unintended pregnancy [None]

NARRATIVE: CASE EVENT DATE: 20170220
